FAERS Safety Report 18700711 (Version 3)
Quarter: 2021Q1

REPORT INFORMATION
  Report Type: Spontaneous
  Country: US (occurrence: US)
  Receive Date: 20210105
  Receipt Date: 20210114
  Transmission Date: 20210419
  Serious: No
  Sender: FDA-Public Use
  Company Number: US-PFIZER INC-2020463270

PATIENT
  Age: 12 Year
  Sex: Female
  Weight: 45.36 kg

DRUGS (2)
  1. GENOTROPIN [Suspect]
     Active Substance: SOMATROPIN
     Indication: HYPOPITUITARISM
  2. GENOTROPIN [Suspect]
     Active Substance: SOMATROPIN
     Indication: SHORT STATURE
     Dosage: 1.4 MG, DAILY
     Route: 058
     Dates: start: 202010

REACTIONS (5)
  - Device deployment issue [Unknown]
  - Device defective [Unknown]
  - Poor quality device used [Unknown]
  - Product solubility abnormal [Unknown]
  - Device leakage [Unknown]

NARRATIVE: CASE EVENT DATE: 20201109
